FAERS Safety Report 15925258 (Version 5)
Quarter: 2019Q4

REPORT INFORMATION
  Report Type: Spontaneous
  Country: US (occurrence: US)
  Receive Date: 20190206
  Receipt Date: 20191223
  Transmission Date: 20200122
  Serious: No
  Sender: FDA-Public Use
  Company Number: US-PFIZER INC-2019052436

PATIENT
  Age: 87 Year
  Sex: Female

DRUGS (1)
  1. IBRANCE [Suspect]
     Active Substance: PALBOCICLIB
     Indication: BREAST CANCER FEMALE
     Dosage: 125 MG, 1X/DAY
     Dates: start: 201710

REACTIONS (3)
  - Condition aggravated [Not Recovered/Not Resolved]
  - Neoplasm progression [Unknown]
  - Hypoacusis [Not Recovered/Not Resolved]
